FAERS Safety Report 5518362-0 (Version None)
Quarter: 2007Q4

REPORT INFORMATION
  Report Type: 
  Country: None (occurrence: None)
  Receive Date: 20071113
  Receipt Date: 20071113
  Transmission Date: 20080405
  Serious: Yes (Hospitalization, Other)
  Sender: FDA-Public Use
  Company Number: None

PATIENT
  Age: 49 Year
  Sex: Female
  Weight: 68.0396 kg

DRUGS (2)
  1. LEVOTHYROXINE SODIUM [Suspect]
     Indication: HYPOTHYROIDISM
     Dosage: .125 MG 1X DAY  PO  (DURATION: SEVERAL YEARS)
     Route: 048
  2. SYNTHROID [Suspect]

REACTIONS (11)
  - ANGIOPATHY [None]
  - HEADACHE [None]
  - HYPOGLYCAEMIA [None]
  - LUPUS-LIKE SYNDROME [None]
  - MUSCLE SPASMS [None]
  - NEUROPATHY [None]
  - OEDEMA [None]
  - PHARMACEUTICAL PRODUCT COMPLAINT [None]
  - RASH PRURITIC [None]
  - SCAR [None]
  - SKIN DISCOLOURATION [None]
